FAERS Safety Report 14707946 (Version 1)
Quarter: 2018Q2

REPORT INFORMATION
  Report Type: Spontaneous
  Country: US (occurrence: US)
  Receive Date: 20180403
  Receipt Date: 20180403
  Transmission Date: 20180711
  Serious: No
  Sender: FDA-Public Use
  Company Number: US-PFIZER INC-2018113741

PATIENT
  Age: 35 Year
  Sex: Female
  Weight: 104.3 kg

DRUGS (3)
  1. LYRICA [Suspect]
     Active Substance: PREGABALIN
     Indication: EPILEPSY
  2. LYRICA [Suspect]
     Active Substance: PREGABALIN
     Indication: SEIZURE
  3. LYRICA [Suspect]
     Active Substance: PREGABALIN
     Indication: IDIOPATHIC PARTIAL EPILEPSY
     Dosage: 150 MG, 2X/DAY
     Route: 048
     Dates: start: 20090809

REACTIONS (4)
  - Palpitations [Unknown]
  - Fall [Unknown]
  - Gait disturbance [Unknown]
  - Joint swelling [Unknown]
